FAERS Safety Report 21028387 (Version 1)
Quarter: 2022Q2

REPORT INFORMATION
  Report Type: Report from Study
  Country: US (occurrence: US)
  Receive Date: 20220630
  Receipt Date: 20220630
  Transmission Date: 20220721
  Serious: Yes (Hospitalization)
  Sender: FDA-Public Use
  Company Number: US-REGENERON PHARMACEUTICALS, INC.-2022-084825

PATIENT
  Age: 72 Year
  Sex: Male

DRUGS (2)
  1. INVESTIGATIONAL PRODUCT [Suspect]
     Active Substance: INVESTIGATIONAL PRODUCT
     Indication: Prostate cancer metastatic
     Dosage: 300 MG, WEEKLY
     Route: 042
     Dates: start: 20220531, end: 20220624
  2. CEMIPLIMAB [Suspect]
     Active Substance: CEMIPLIMAB
     Indication: Prostate cancer metastatic
     Dosage: 350 MG, Q3W
     Route: 042
     Dates: start: 20220621, end: 20220624

REACTIONS (2)
  - Sepsis [Not Recovered/Not Resolved]
  - Cranial nerve disorder [Not Recovered/Not Resolved]

NARRATIVE: CASE EVENT DATE: 20220625
